FAERS Safety Report 8973730 (Version 2)
Quarter: 2013Q2

REPORT INFORMATION
  Report Type: Spontaneous
  Country: DK (occurrence: DK)
  Receive Date: 20121219
  Receipt Date: 20130530
  Transmission Date: 20140414
  Serious: Yes (Disabling)
  Sender: FDA-Public Use
  Company Number: DK-BRISTOL-MYERS SQUIBB COMPANY-17199654

PATIENT
  Age: 52 Year
  Sex: Female
  Weight: 70 kg

DRUGS (1)
  1. KENALOG-40 INJ [Suspect]
     Indication: MUSCULOSKELETAL PAIN
     Dosage: DOSE: 1 INJECTION EEN GANG, STRENGTH: 40 MG/ML?SUSPENSION FOR INJECTION
     Route: 030
     Dates: start: 20120301

REACTIONS (3)
  - Chorioretinopathy [Not Recovered/Not Resolved]
  - Metamorphopsia [Unknown]
  - Vision blurred [Unknown]
